FAERS Safety Report 7009497-4 (Version None)
Quarter: 2010Q3

REPORT INFORMATION
  Report Type: 
  Country: None (occurrence: None)
  Receive Date: 20100923
  Receipt Date: 20100913
  Transmission Date: 20110219
  Serious: Yes (Other)
  Sender: FDA-Public Use
  Company Number: PHHY2010FR61588

PATIENT
  Age: 67 Year
  Sex: Male

DRUGS (2)
  1. VOLTAREN [Suspect]
     Indication: JOINT RANGE OF MOTION DECREASED
     Dosage: 1 DF, PER DAY
     Dates: end: 20100912
  2. LANSOPRAZOLE [Suspect]

REACTIONS (3)
  - HEMIPLEGIA [None]
  - MOBILITY DECREASED [None]
  - SENSATION OF HEAVINESS [None]
